FAERS Safety Report 5034289-5 (Version None)
Quarter: 2006Q2

REPORT INFORMATION
  Report Type: 
  Country: None (occurrence: None)
  Receive Date: 20060518
  Receipt Date: 20050628
  Transmission Date: 20061013
  Serious: Yes (Other)
  Sender: FDA-Public Use
  Company Number: 2005090127

PATIENT
  Age: 33 Year
  Sex: Female
  Weight: 54.4316 kg

DRUGS (2)
  1. DEPO-PROVERA [Suspect]
     Dosage: SEE IMAGE
     Dates: start: 20041001, end: 20041001
  2. DEPO-PROVERA [Suspect]
     Dosage: SEE IMAGE
     Dates: start: 20050406, end: 20050406

REACTIONS (1)
  - OSTEOPOROSIS [None]
